FAERS Safety Report 8829113 (Version 1)
Quarter: 2012Q4

REPORT INFORMATION
  Report Type: 
  Country: US (occurrence: US)
  Receive Date: 20121008
  Receipt Date: 20121008
  Transmission Date: 20130627
  Serious: Yes (Other)
  Sender: FDA-Public Use
  Company Number: PHHY2012US077969

PATIENT
  Age: 57 Year
  Sex: Female

DRUGS (5)
  1. ASCRIPTIN BUFFERED MAX STRENGTH CAPLETS [Suspect]
     Indication: MIGRAINE
  2. AMANTADINE [Concomitant]
  3. ZOMIN [Concomitant]
  4. RITALIN [Concomitant]
  5. PROZAC [Concomitant]

REACTIONS (4)
  - Primary progressive multiple sclerosis [Unknown]
  - Pain [Unknown]
  - Headache [Unknown]
  - Wrong technique in drug usage process [Unknown]
